FAERS Safety Report 20780296 (Version 2)
Quarter: 2022Q2

REPORT INFORMATION
  Report Type: Report from Study
  Country: CO (occurrence: CO)
  Receive Date: 20220503
  Receipt Date: 20220630
  Transmission Date: 20220721
  Serious: Yes (Death, Hospitalization, Other)
  Sender: FDA-Public Use
  Company Number: CO-JNJFOC-20220145178

PATIENT
  Age: 43 Year
  Sex: Male
  Weight: 100 kg

DRUGS (3)
  1. IMBRUVICA [Suspect]
     Active Substance: IBRUTINIB
     Indication: Mantle cell lymphoma
     Route: 048
     Dates: start: 20211130, end: 20220206
  2. IMBRUVICA [Suspect]
     Active Substance: IBRUTINIB
     Route: 048
  3. DICLOXACILLIN [Concomitant]
     Active Substance: DICLOXACILLIN
     Indication: Product used for unknown indication
     Route: 065

REACTIONS (7)
  - Death [Fatal]
  - Cellulitis [Unknown]
  - Abscess [Recovering/Resolving]
  - Staphylococcal infection [Unknown]
  - Eye disorder [Recovering/Resolving]
  - Limb injury [Recovering/Resolving]
  - Pruritus [Recovering/Resolving]

NARRATIVE: CASE EVENT DATE: 20211210
